FAERS Safety Report 26039860 (Version 1)
Quarter: 2025Q4

REPORT INFORMATION
  Report Type: Spontaneous
  Country: US (occurrence: US)
  Receive Date: 20251113
  Receipt Date: 20251113
  Transmission Date: 20260118
  Serious: No
  Sender: GILEAD
  Company Number: US-GILEAD-2025-0735358

PATIENT
  Sex: Male

DRUGS (3)
  1. YEZTUGO [Suspect]
     Active Substance: LENACAPAVIR SODIUM
     Indication: Prophylaxis against HIV infection
     Dosage: ONLY 1 DOSE ADMINISTERED IN OFFICE, INJECTION
     Route: 065
     Dates: start: 20251031, end: 20251031
  2. YEZTUGO [Suspect]
     Active Substance: LENACAPAVIR SODIUM
     Indication: Prophylaxis against HIV infection
     Dosage: 2 ORAL LOADING DOSES IN OFFICE, TABLET
     Route: 048
     Dates: start: 20251031
  3. YEZTUGO [Suspect]
     Active Substance: LENACAPAVIR SODIUM
     Dosage: TOOK 2ND 2 LOADING DOSES AS REPORTED BY PATIENT
     Route: 048

REACTIONS (2)
  - Incorrect dose administered [Unknown]
  - Product storage error [Unknown]

NARRATIVE: CASE EVENT DATE: 20251031
